FAERS Safety Report 21421341 (Version 1)
Quarter: 2022Q4

REPORT INFORMATION
  Report Type: Spontaneous
  Country: CN (occurrence: CN)
  Receive Date: 20221007
  Receipt Date: 20221007
  Transmission Date: 20230113
  Serious: Yes (Death, Hospitalization)
  Sender: FDA-Public Use
  Company Number: CN-STRIDES ARCOLAB LIMITED-2022SP012684

PATIENT
  Age: 35 Year
  Sex: Female

DRUGS (8)
  1. DEXAMETHASONE [Suspect]
     Active Substance: DEXAMETHASONE
     Indication: B-cell lymphoma
     Dosage: UNK
     Route: 065
  2. ETOPOSIDE [Suspect]
     Active Substance: ETOPOSIDE
     Indication: B-cell lymphoma
     Dosage: 80 MILLIGRAM (DOSAGE: 80 MG DAY 1-3)
     Route: 065
  3. ETOPOSIDE [Suspect]
     Active Substance: ETOPOSIDE
     Dosage: DOSAGE: ADMINISTERED WITH DEXAMETHASONE. DOSE UNKNOWN
     Route: 065
  4. VENETOCLAX [Suspect]
     Active Substance: VENETOCLAX
     Indication: B-cell lymphoma
     Dosage: UNK
     Route: 065
  5. ZANUBRUTINIB [Suspect]
     Active Substance: ZANUBRUTINIB
     Indication: B-cell lymphoma
     Dosage: UNK
     Route: 065
  6. RITUXIMAB [Suspect]
     Active Substance: RITUXIMAB
     Indication: B-cell lymphoma
     Dosage: 500 MILLIGRAM (DOSAGE: ON DAY ZERO OF ADMISSION)
     Route: 065
  7. IFOSFAMIDE [Suspect]
     Active Substance: IFOSFAMIDE
     Indication: B-cell lymphoma
     Dosage: 1500 MILLIGRAM (DOSAGE: ON DAY 1-3 OF ADMISSION)
     Route: 065
  8. MITOXANTRONE HYDROCHLORIDE [Suspect]
     Active Substance: MITOXANTRONE HYDROCHLORIDE
     Indication: B-cell lymphoma
     Dosage: 30 MILLIGRAM (DOSAGE: ON DAY 2 OF ADMISSION)
     Route: 065

REACTIONS (2)
  - Drug ineffective [Fatal]
  - Off label use [Unknown]
